FAERS Safety Report 7903697-4 (Version None)
Quarter: 2011Q4

REPORT INFORMATION
  Report Type: 
  Country: None (occurrence: None)
  Receive Date: 20111109
  Receipt Date: 20111104
  Transmission Date: 20120403
  Serious: Yes (Other)
  Sender: FDA-Public Use
  Company Number: US-AMGEN-USACT2011055729

PATIENT
  Age: 80 Year
  Sex: Female

DRUGS (4)
  1. ZYRTEC [Concomitant]
     Dosage: UNK
     Route: 048
     Dates: start: 20100412
  2. PREDNISONE [Concomitant]
     Dosage: 5 MG, QD
     Route: 048
     Dates: start: 20110616
  3. DENOSUMAB [Suspect]
     Indication: OSTEOPOROSIS
     Dosage: 60 MG, Q6MO
     Route: 058
     Dates: start: 20061024, end: 20100423
  4. NASONEX [Concomitant]
     Dosage: UNK
     Route: 055
     Dates: start: 20101001

REACTIONS (1)
  - BREAST CANCER IN SITU [None]
